FAERS Safety Report 12248929 (Version 1)
Quarter: 2016Q2

REPORT INFORMATION
  Report Type: Spontaneous
  Country: US (occurrence: None)
  Receive Date: 20160407
  Receipt Date: 20160407
  Transmission Date: 20160815
  Serious: Yes (Disabling)
  Sender: FDA-Public Use
  Company Number: None

PATIENT
  Age: 54 Year
  Sex: Male
  Weight: 160 kg

DRUGS (4)
  1. CLOBETASOL PROPIONATE .05, 60 G [Suspect]
     Active Substance: CLOBETASOL PROPIONATE
     Indication: DERMATITIS
     Dosage: 1 TUBE TWICE A DAY APPLIED TO A SURFACE, USUALLY THE SKIN
     Dates: start: 20140310, end: 20150310
  2. TRIAMCINOLONE ACETONIDE .1%, 80 G [Suspect]
     Active Substance: TRIAMCINOLONE ACETONIDE
     Indication: DERMATITIS
     Dosage: 1 TUBE TWICE A DAY APPLIED TO A SURFACE, USUALLY THE SKIN
  3. ANTIHISTAMINES [Concomitant]
     Active Substance: ANTIHISTAMINES NOS
  4. DAILY MULTIVITAMIN [Concomitant]
     Active Substance: VITAMINS

REACTIONS (9)
  - Rash [None]
  - Pain in extremity [None]
  - Erythema [None]
  - Feeling abnormal [None]
  - Pruritus [None]
  - Hypoaesthesia [None]
  - Dry skin [None]
  - Skin exfoliation [None]
  - Peripheral coldness [None]

NARRATIVE: CASE EVENT DATE: 20160120
